FAERS Safety Report 23011867 (Version 3)
Quarter: 2023Q4

REPORT INFORMATION
  Report Type: Spontaneous
  Country: JP (occurrence: JP)
  Receive Date: 20230929
  Receipt Date: 20231201
  Transmission Date: 20240110
  Serious: Yes (Hospitalization, Other)
  Sender: FDA-Public Use
  Company Number: JP-MSD-2309JPN003844J

PATIENT
  Age: 57 Year
  Sex: Female

DRUGS (2)
  1. KEYTRUDA [Suspect]
     Active Substance: PEMBROLIZUMAB
     Indication: Uterine cancer
     Dosage: UNK
     Route: 041
     Dates: start: 20230221, end: 202304
  2. LENVATINIB MESYLATE [Suspect]
     Active Substance: LENVATINIB MESYLATE
     Indication: Uterine cancer
     Dosage: 20 MILLIGRAM, QD
     Route: 048
     Dates: start: 20230221, end: 202304

REACTIONS (3)
  - Schizophrenia [Unknown]
  - Malignant neoplasm progression [Unknown]
  - Thyroiditis subacute [Recovering/Resolving]

NARRATIVE: CASE EVENT DATE: 20230401
